FAERS Safety Report 6862511-9 (Version None)
Quarter: 2010Q3

REPORT INFORMATION
  Report Type: 
  Country: None (occurrence: None)
  Receive Date: 20100721
  Receipt Date: 20100709
  Transmission Date: 20110219
  Serious: Yes (Hospitalization, Other)
  Sender: FDA-Public Use
  Company Number: FR-KINGPHARMUSA00001-K201000868

PATIENT
  Age: 61 Year
  Sex: Male

DRUGS (11)
  1. ALTACE [Suspect]
     Dosage: 5 MG, QD
     Route: 048
  2. LASIX [Suspect]
     Indication: HYPERTENSION
     Dosage: 40 MG, QD
     Route: 048
  3. MYFORTIC [Suspect]
     Dosage: 360 MG, BID
     Route: 048
  4. TARDYFERON B9 [Concomitant]
     Dosage: 2 DF, UNK
     Route: 048
  5. SODIUM BICARBONATE [Concomitant]
     Dosage: 1 G, Q4H
  6. EUPRESSYL [Concomitant]
     Dosage: 60 MG, TID
  7. AMLOR [Concomitant]
     Dosage: 10 MG, QD
  8. AVLOCARDYL [Concomitant]
     Dosage: 160 MG, QD
  9. LESCOL [Concomitant]
     Dosage: 40 MG, QD
  10. RISPERDAL [Concomitant]
     Dosage: 1 MG, BID
  11. LORAZEPAM [Concomitant]
     Dosage: 2.5 MG, QD

REACTIONS (6)
  - AMNESIA [None]
  - DIARRHOEA HAEMORRHAGIC [None]
  - HAEMORRHAGE [None]
  - NORMOCHROMIC NORMOCYTIC ANAEMIA [None]
  - PSYCHOMOTOR RETARDATION [None]
  - RENAL FAILURE ACUTE [None]
